FAERS Safety Report 7011093-X (Version None)
Quarter: 2010Q3

REPORT INFORMATION
  Report Type: 
  Country: None (occurrence: None)
  Receive Date: 20100923
  Receipt Date: 20100910
  Transmission Date: 20110219
  Serious: Yes (Other)
  Sender: FDA-Public Use
  Company Number: DE-CUBIST-2010S1001388

PATIENT
  Age: 53 Year
  Sex: Male
  Weight: 96 kg

DRUGS (14)
  1. CUBICIN [Suspect]
     Indication: PRODUCT USED FOR UNKNOWN INDICATION
  2. CUBICIN [Suspect]
  3. ZIENAM [Concomitant]
     Indication: PRODUCT USED FOR UNKNOWN INDICATION
     Dates: start: 20100826, end: 20100831
  4. LEVOTHYROXINE SODIUM [Concomitant]
     Indication: PRODUCT USED FOR UNKNOWN INDICATION
  5. PANTOPRAZOLE SODIUM [Concomitant]
     Indication: PRODUCT USED FOR UNKNOWN INDICATION
  6. URSO FALK [Concomitant]
     Indication: PRODUCT USED FOR UNKNOWN INDICATION
  7. LAXOBERAL [Concomitant]
     Indication: PRODUCT USED FOR UNKNOWN INDICATION
  8. EFFORTIL [Concomitant]
     Indication: PRODUCT USED FOR UNKNOWN INDICATION
  9. TORASEMIDE [Concomitant]
     Indication: PRODUCT USED FOR UNKNOWN INDICATION
  10. KONAKION [Concomitant]
     Indication: PRODUCT USED FOR UNKNOWN INDICATION
  11. DIPIDOLOR [Concomitant]
     Indication: PRODUCT USED FOR UNKNOWN INDICATION
  12. KEVATRIL [Concomitant]
     Indication: PRODUCT USED FOR UNKNOWN INDICATION
  13. DIMENHYDRINATE [Concomitant]
     Indication: PRODUCT USED FOR UNKNOWN INDICATION
  14. PLASMA PROTEIN FRACTION (HUMAN) [Concomitant]
     Indication: PRODUCT USED FOR UNKNOWN INDICATION

REACTIONS (3)
  - ANXIETY [None]
  - DISORIENTATION [None]
  - HALLUCINATION [None]
